FAERS Safety Report 11237928 (Version 3)
Quarter: 2015Q4

REPORT INFORMATION
  Report Type: Spontaneous
  Country: US (occurrence: US)
  Receive Date: 20150703
  Receipt Date: 20151029
  Transmission Date: 20160304
  Serious: No
  Sender: FDA-Public Use
  Company Number: US-ELI_LILLY_AND_COMPANY-US201506002412

PATIENT
  Age: 59 Year
  Sex: Male
  Weight: 72 kg

DRUGS (4)
  1. SUTENT [Concomitant]
     Active Substance: SUNITINIB MALATE
     Indication: THYMIC CANCER METASTATIC
     Dosage: 50 MG, QD, 14 DAYS ON AND 7 DAYS OFF
     Route: 065
  2. ALIMTA [Suspect]
     Active Substance: PEMETREXED DISODIUM
     Indication: THYMIC CANCER METASTATIC
     Dosage: UNK, UNKNOWN
     Route: 065
  3. VOLTAREN [Concomitant]
     Active Substance: DICLOFENAC SODIUM
     Indication: MUSCULOSKELETAL PAIN
     Dosage: UNK, UNKNOWN
     Route: 065
  4. SUTENT [Concomitant]
     Active Substance: SUNITINIB MALATE
     Dosage: UNK

REACTIONS (6)
  - Headache [Unknown]
  - Hepatic function abnormal [Recovered/Resolved]
  - Musculoskeletal pain [Recovering/Resolving]
  - Insomnia [Recovered/Resolved]
  - Hypertension [Unknown]
  - Off label use [Unknown]

NARRATIVE: CASE EVENT DATE: 20150318
